FAERS Safety Report 12258771 (Version 1)
Quarter: 2016Q2

REPORT INFORMATION
  Report Type: Spontaneous
  Country: US (occurrence: US)
  Receive Date: 20160412
  Receipt Date: 20160412
  Transmission Date: 20160815
  Serious: No
  Sender: FDA-Public Use
  Company Number: US-SA-2015SA059075

PATIENT
  Age: 90 Year
  Sex: Female

DRUGS (3)
  1. ALLEGRA [Suspect]
     Active Substance: FEXOFENADINE HYDROCHLORIDE
     Route: 048
     Dates: start: 20150429
  2. WARFARIN [Concomitant]
     Active Substance: WARFARIN
     Route: 065
  3. COUMADIN [Concomitant]
     Active Substance: WARFARIN SODIUM
     Route: 065

REACTIONS (2)
  - Insomnia [Unknown]
  - Somnolence [Unknown]

NARRATIVE: CASE EVENT DATE: 20150430
